FAERS Safety Report 4512238-3 (Version None)
Quarter: 2004Q4

REPORT INFORMATION
  Report Type: 
  Country: None (occurrence: None)
  Receive Date: 20041123
  Receipt Date: 20041108
  Transmission Date: 20050328
  Serious: Yes (Death)
  Sender: FDA-Public Use
  Company Number: 210536

PATIENT
  Age: 71 Year
  Sex: Male
  Weight: 70 kg

DRUGS (6)
  1. AVASTIN [Suspect]
     Indication: COLORECTAL CANCER METASTATIC
     Dosage: 522 MG, Q3W, INTRAVENOUS
     Route: 042
     Dates: start: 20040804, end: 20041105
  2. TAMSULOSIN (TAMSULOSIN HYDROCHLORIDE) [Concomitant]
  3. CITALOPRAM [Concomitant]
  4. MIANSERIN (MIANSERIN HYDROCHLORIDE) [Concomitant]
  5. ALLOPURINOL [Concomitant]
  6. OMEPRAZOLE [Concomitant]

REACTIONS (2)
  - PULMONARY EMBOLISM [None]
  - RESUSCITATION [None]
